FAERS Safety Report 5656894-5 (Version None)
Quarter: 2008Q1

REPORT INFORMATION
  Report Type: 
  Country: None (occurrence: None)
  Receive Date: 20080219
  Receipt Date: 20071030
  Transmission Date: 20080703
  Serious: No
  Sender: FDA-Public Use
  Company Number: WAES 0710USA06525

PATIENT
  Age: 65 Year
  Sex: Female

DRUGS (9)
  1. JANUVIA [Suspect]
     Indication: DIABETES MELLITUS
     Dosage: 100 MG/DAILY/PO
     Route: 048
     Dates: start: 20070703
  2. COREG [Concomitant]
  3. DIOVAN [Concomitant]
  4. LASIX [Concomitant]
  5. PLAVIX [Concomitant]
  6. SYNTHROID [Concomitant]
  7. VYTORIN [Concomitant]
  8. ALLOPURINOL [Concomitant]
  9. POTASSIUM (UNSPECIFIED) [Concomitant]

REACTIONS (11)
  - DRY SKIN [None]
  - ERYTHEMA [None]
  - HYPERHIDROSIS [None]
  - ORAL PAIN [None]
  - PAIN OF SKIN [None]
  - PRURITUS [None]
  - SKIN ATROPHY [None]
  - SKIN DISORDER [None]
  - SKIN FISSURES [None]
  - SKIN HAEMORRHAGE [None]
  - VAGINAL HAEMORRHAGE [None]
